FAERS Safety Report 7376597-9 (Version None)
Quarter: 2011Q1

REPORT INFORMATION
  Report Type: 
  Country: None (occurrence: None)
  Receive Date: 20110317
  Receipt Date: 20110228
  Transmission Date: 20110831
  Serious: No
  Sender: FDA-Public Use
  Company Number: 2011-00082

PATIENT
  Age: 60 Year
  Sex: Female
  Weight: 77.1115 kg

DRUGS (4)
  1. ELAVIL [Concomitant]
  2. CELEBREX [Concomitant]
  3. ZICAM COLD REMEDY PLUS LIQUI-LOZ [Suspect]
     Dosage: ONGOING
     Dates: start: 20110221
  4. CYMBALTA [Concomitant]

REACTIONS (1)
  - AGEUSIA [None]
